FAERS Safety Report 5258255-X (Version None)
Quarter: 2007Q1

REPORT INFORMATION
  Report Type: 
  Country: None (occurrence: None)
  Receive Date: 20070302
  Receipt Date: 20070222
  Transmission Date: 20070707
  Serious: No
  Sender: FDA-Public Use
  Company Number: 200711565

PATIENT
  Age: 72 Year
  Sex: Female
  Weight: 70 kg

DRUGS (3)
  1. SANDOGLOBULIN [Suspect]
     Indication: GUILLAIN-BARRE SYNDROME
     Dosage: 10 G ONCE IV
     Route: 042
     Dates: start: 20061226, end: 20061227
  2. ASPIRIN [Concomitant]
  3. RANTUDIL [Concomitant]

REACTIONS (3)
  - CHILLS [None]
  - MALAISE [None]
  - TACHYCARDIA [None]
